FAERS Safety Report 8446558-7 (Version None)
Quarter: 2012Q2

REPORT INFORMATION
  Report Type: 
  Country: None (occurrence: None)
  Receive Date: 20120618
  Receipt Date: 20120605
  Transmission Date: 20120825
  Serious: Yes (Hospitalization)
  Sender: FDA-Public Use
  Company Number: CHPA2012US012050

PATIENT
  Age: 50 Year
  Sex: Male

DRUGS (1)
  1. NODOZ [Suspect]
     Indication: DEPRESSED LEVEL OF CONSCIOUSNESS
     Dosage: 2 DF, UNK
     Route: 048
     Dates: end: 20120528

REACTIONS (4)
  - HEADACHE [None]
  - HYPOAESTHESIA [None]
  - CONVULSION [None]
  - INCORRECT DOSE ADMINISTERED [None]
